FAERS Safety Report 25148725 (Version 2)
Quarter: 2025Q2

REPORT INFORMATION
  Report Type: Report from Study
  Country: US (occurrence: US)
  Receive Date: 20250402
  Receipt Date: 20250424
  Transmission Date: 20250716
  Serious: No
  Sender: SUNOVION
  Company Number: US-SMPA-2025SPA002964AA

PATIENT

DRUGS (1)
  1. ORGOVYX [Suspect]
     Active Substance: RELUGOLIX
     Indication: Prostate cancer
     Dosage: 120 MG, QD
     Route: 048
     Dates: start: 20250311

REACTIONS (6)
  - Therapeutic procedure [Unknown]
  - Circadian rhythm sleep disorder [Unknown]
  - Hot flush [Unknown]
  - Asthenia [Unknown]
  - Incorrect dose administered [Unknown]
  - Therapy interrupted [Unknown]

NARRATIVE: CASE EVENT DATE: 20250331
